FAERS Safety Report 11094966 (Version 5)
Quarter: 2015Q4

REPORT INFORMATION
  Report Type: Report from Study
  Country: US (occurrence: US)
  Receive Date: 20150506
  Receipt Date: 20151021
  Transmission Date: 20160304
  Serious: Yes (Other)
  Sender: FDA-Public Use
  Company Number: US-SA-2015SA054466

PATIENT
  Age: 62 Year
  Sex: Female
  Weight: 68.03 kg

DRUGS (6)
  1. AMPYRA [Concomitant]
     Active Substance: DALFAMPRIDINE
  2. NAPROXEN. [Concomitant]
     Active Substance: NAPROXEN
  3. BACLOFEN. [Concomitant]
     Active Substance: BACLOFEN
  4. AUBAGIO [Suspect]
     Active Substance: TERIFLUNOMIDE
     Indication: MULTIPLE SCLEROSIS
     Route: 048
     Dates: start: 20150414
  5. TYSABRI [Concomitant]
     Active Substance: NATALIZUMAB
     Dates: start: 20120801, end: 20150215
  6. VITAMIN D [Concomitant]
     Active Substance: CHOLECALCIFEROL

REACTIONS (10)
  - Enuresis [Recovered/Resolved]
  - Retching [Recovering/Resolving]
  - Loss of consciousness [Recovered/Resolved]
  - Urinary incontinence [Recovering/Resolving]
  - Cold sweat [Recovered/Resolved]
  - Abdominal pain upper [Recovering/Resolving]
  - Pain in extremity [Recovered/Resolved]
  - Arthralgia [Not Recovered/Not Resolved]
  - Pain in extremity [Not Recovered/Not Resolved]
  - Nausea [Recovered/Resolved]

NARRATIVE: CASE EVENT DATE: 20150416
